FAERS Safety Report 6766904-X (Version None)
Quarter: 2010Q2

REPORT INFORMATION
  Report Type: 
  Country: None (occurrence: None)
  Receive Date: 20100611
  Receipt Date: 20100527
  Transmission Date: 20101027
  Serious: Yes (Life-Threatening)
  Sender: FDA-Public Use
  Company Number: NL-GENENTECH-299310

PATIENT
  Sex: Female
  Weight: 45.9 kg

DRUGS (33)
  1. RITUXIMAB [Suspect]
     Indication: DIFFUSE LARGE B-CELL LYMPHOMA
     Dosage: 600 MG, UNK
     Route: 042
     Dates: start: 20100303
  2. RITUXIMAB [Suspect]
     Dosage: UNK
     Route: 042
     Dates: start: 20100328
  3. PREDNISONE [Suspect]
     Indication: DIFFUSE LARGE B-CELL LYMPHOMA
     Dosage: 100 MG, UNK
     Route: 048
     Dates: start: 20100303
  4. PREDNISONE [Suspect]
     Dosage: 100 MG, UNK
     Route: 048
     Dates: start: 20100331
  5. PREDNISONE [Suspect]
     Dosage: 100 MG, UNK
     Route: 048
     Dates: start: 20100428
  6. CYCLOPHOSPHAMIDE [Suspect]
     Indication: DIFFUSE LARGE B-CELL LYMPHOMA
     Dosage: 1252 MG, UNK
     Route: 042
     Dates: start: 20100303
  7. CYCLOPHOSPHAMIDE [Suspect]
     Dosage: UNK
     Route: 042
     Dates: start: 20100331
  8. CYCLOPHOSPHAMIDE [Suspect]
     Dosage: UNK
     Route: 042
     Dates: start: 20100428
  9. DOXORUBICIN HCL [Suspect]
     Indication: DIFFUSE LARGE B-CELL LYMPHOMA
     Dosage: 83 MG, UNK
     Route: 042
     Dates: start: 20100303
  10. DOXORUBICIN HCL [Suspect]
     Dosage: UNK
     Route: 042
     Dates: start: 20100331
  11. DOXORUBICIN HCL [Suspect]
     Dosage: UNK
     Route: 042
     Dates: start: 20100428
  12. VINCRISTINE [Suspect]
     Indication: DIFFUSE LARGE B-CELL LYMPHOMA
     Dosage: 2 MG, UNK
     Route: 042
     Dates: start: 20100303
  13. VINCRISTINE [Suspect]
     Dosage: UNK
     Route: 042
     Dates: start: 20100303
  14. VINCRISTINE [Suspect]
     Dosage: UNK
     Route: 042
     Dates: start: 20100331
  15. VINCRISTINE [Suspect]
     Dosage: UNK
     Route: 042
     Dates: start: 20100428
  16. NEXIUM [Concomitant]
     Indication: REFLUX GASTRITIS
     Dosage: UNK
     Route: 048
     Dates: start: 20100304
  17. HEXASOPTIN [Concomitant]
     Indication: HYPERTENSION
     Dosage: UNK
     Route: 048
     Dates: start: 20100304
  18. HEXASOPTIN [Concomitant]
     Dosage: UNK
     Route: 048
     Dates: start: 20100330
  19. ATACAND [Concomitant]
     Indication: HYPERTENSION
     Dosage: UNK
     Route: 048
     Dates: start: 20100304
  20. ATACAND [Concomitant]
     Dosage: UNK
     Route: 048
     Dates: start: 20100330
  21. ELTROXIN [Concomitant]
     Indication: HYPOTHYROIDISM
     Dosage: UNK
     Route: 048
     Dates: start: 20100304
  22. ELTROXIN [Concomitant]
     Dosage: UNK
     Route: 048
     Dates: start: 20100330
  23. CETIRIZINE HCL [Concomitant]
     Indication: RASH
     Dosage: UNK
     Route: 048
     Dates: start: 20100304
  24. CETIRIZINE HCL [Concomitant]
     Dosage: UNK
     Route: 048
     Dates: start: 20100330
  25. MAGNESIA [Concomitant]
     Indication: CONSTIPATION
     Dosage: UNK
     Route: 048
     Dates: start: 20100304
  26. TOILAX [Concomitant]
     Indication: CONSTIPATION
     Dosage: UNK
     Route: 048
     Dates: start: 20100304
  27. PICOLON [Concomitant]
     Indication: CONSTIPATION
     Dosage: 15 UNK, QD
     Route: 048
     Dates: start: 20100304
  28. ZELITREX [Concomitant]
     Indication: DRUG USE FOR UNKNOWN INDICATION
     Dosage: 500 MG, UNK
     Route: 048
     Dates: start: 20100330, end: 20100331
  29. BACTRIM [Concomitant]
     Indication: PROPHYLAXIS
     Dosage: 480 MG, UNK
     Route: 048
     Dates: start: 20100427
  30. FLUCONAZOLE [Concomitant]
     Indication: FUNGAL INFECTION
     Dosage: UNK
     Dates: start: 20100427
  31. PANTOPRAZOLE [Concomitant]
     Indication: GASTRITIS
     Dosage: UNK
     Route: 048
     Dates: start: 20100427
  32. LOPERAMIDE [Concomitant]
     Indication: DIARRHOEA
     Dosage: UNK
     Dates: start: 20100427
  33. CETIRIZINE HCL [Concomitant]
     Indication: RASH
     Dosage: UNK
     Dates: start: 20100304

REACTIONS (8)
  - BLOOD ELECTROLYTES ABNORMAL [None]
  - DECREASED APPETITE [None]
  - DEHYDRATION [None]
  - DIARRHOEA [None]
  - FUNGAL INFECTION [None]
  - GASTRITIS [None]
  - HYPOTENSION [None]
  - WEIGHT DECREASED [None]
